FAERS Safety Report 10641962 (Version 1)
Quarter: 2014Q4

REPORT INFORMATION
  Report Type: Spontaneous
  Country: ES (occurrence: ES)
  Receive Date: 20141209
  Receipt Date: 20141209
  Transmission Date: 20150529
  Serious: Yes (Life-Threatening)
  Sender: FDA-Public Use
  Company Number: ES-ALLERGAN-1424932US

PATIENT
  Age: 80 Year
  Sex: Female

DRUGS (1)
  1. GANFORT [Suspect]
     Active Substance: BIMATOPROST\TIMOLOL
     Indication: OCULAR HYPERTENSION
     Dosage: 2 GTT, QD
     Route: 047
     Dates: start: 20140925, end: 20141128

REACTIONS (3)
  - Hypertension [Recovered/Resolved]
  - Aphasia [Recovered/Resolved]
  - Conjunctivitis [Recovered/Resolved]

NARRATIVE: CASE EVENT DATE: 20140929
